FAERS Safety Report 5275785-5 (Version None)
Quarter: 2007Q1

REPORT INFORMATION
  Report Type: 
  Country: None (occurrence: None)
  Receive Date: 20070326
  Receipt Date: 20070322
  Transmission Date: 20070707
  Serious: Yes (Other)
  Sender: FDA-Public Use
  Company Number: JP-JPN-A200701176

PATIENT
  Age: 12 Year
  Sex: Male
  Weight: 31 kg

DRUGS (5)
  1. RELENZA [Suspect]
     Dosage: 10MG TWICE PER DAY
     Route: 055
     Dates: start: 20060123, end: 20060126
  2. FLOMOX [Concomitant]
     Indication: INFLUENZA
     Dosage: 100MG THREE TIMES PER DAY
     Route: 048
     Dates: start: 20060123, end: 20060126
  3. ASVERIN [Concomitant]
     Indication: INFLUENZA
     Dosage: 60MG PER DAY
     Route: 048
     Dates: start: 20060123, end: 20060126
  4. MUCOSTA [Concomitant]
     Indication: INFLUENZA
     Dosage: 300MG PER DAY
     Route: 048
     Dates: start: 20060123, end: 20060126
  5. CALONAL [Concomitant]
     Indication: INFLUENZA
     Dosage: 1UNIT PER DAY
     Route: 048
     Dates: start: 20060123

REACTIONS (2)
  - HALLUCINATION [None]
  - PYREXIA [None]
